FAERS Safety Report 7774256-1 (Version None)
Quarter: 2011Q3

REPORT INFORMATION
  Report Type: 
  Country: None (occurrence: None)
  Receive Date: 20110923
  Receipt Date: 20110915
  Transmission Date: 20111222
  Serious: Yes (Hospitalization)
  Sender: FDA-Public Use
  Company Number: DE-SANOFI-AVENTIS-2011SA060094

PATIENT
  Age: 84 Year
  Sex: Female

DRUGS (2)
  1. HYDROXYCHLOROQUINE SULFATE [Suspect]
     Indication: LICHENIFICATION
     Route: 048
  2. AMLODIPINE [Concomitant]
     Route: 065

REACTIONS (3)
  - BRADYCARDIA [None]
  - HYPOTENSION [None]
  - FALL [None]
